FAERS Safety Report 25086809 (Version 1)
Quarter: 2025Q1

REPORT INFORMATION
  Report Type: Spontaneous
  Country: DZ (occurrence: DZ)
  Receive Date: 20250318
  Receipt Date: 20250318
  Transmission Date: 20250409
  Serious: Yes (Other)
  Sender: RANBAXY
  Company Number: DZ-SUN PHARMACEUTICAL INDUSTRIES LTD-2025R1-498809

PATIENT
  Age: 38 Year
  Sex: Female

DRUGS (1)
  1. METHOTREXATE [Suspect]
     Active Substance: METHOTREXATE
     Indication: Psoriasis
     Dosage: 20 MILLIGRAM, WEEKLY
     Route: 048

REACTIONS (2)
  - Mucosal toxicity [Unknown]
  - Skin toxicity [Unknown]
